FAERS Safety Report 10094215 (Version 2)
Quarter: 2014Q2

REPORT INFORMATION
  Report Type: Spontaneous
  Country: IT (occurrence: IT)
  Receive Date: 20140422
  Receipt Date: 20140422
  Transmission Date: 20141212
  Serious: Yes (Disabling, Other)
  Sender: FDA-Public Use
  Company Number: IT-ACCORD-022798

PATIENT
  Age: 40 Year
  Sex: Female

DRUGS (1)
  1. DOCETAXEL ACCORD [Suspect]
     Indication: BREAST CANCER
     Dosage: DOSAGE: 80MG /4ML
     Route: 042
     Dates: start: 20140225, end: 20140320

REACTIONS (4)
  - Confusional state [Recovered/Resolved]
  - Tinnitus [Recovered/Resolved]
  - Erythema [Recovered/Resolved]
  - Hypoacusis [Recovered/Resolved]
